FAERS Safety Report 24781575 (Version 1)
Quarter: 2024Q4

REPORT INFORMATION
  Report Type: Spontaneous
  Country: US (occurrence: US)
  Receive Date: 20241227
  Receipt Date: 20241227
  Transmission Date: 20250114
  Serious: No
  Sender: Kenvue
  Company Number: US-KENVUE-20241201001

PATIENT
  Sex: Male

DRUGS (1)
  1. ZYRTEC [Suspect]
     Active Substance: CETIRIZINE HYDROCHLORIDE
     Indication: Product used for unknown indication
     Dosage: UNK
     Route: 065
     Dates: start: 2021

REACTIONS (2)
  - Product administration error [Unknown]
  - Product physical issue [Unknown]

NARRATIVE: CASE EVENT DATE: 20220101
